FAERS Safety Report 4870675-1 (Version None)
Quarter: 2005Q4

REPORT INFORMATION
  Report Type: 
  Country: None (occurrence: None)
  Receive Date: 20051228
  Receipt Date: 20051214
  Transmission Date: 20060501
  Serious: Yes (Hospitalization)
  Sender: FDA-Public Use
  Company Number: DE200512000819

PATIENT
  Age: 75 Year
  Sex: Female

DRUGS (13)
  1. TERIPARATIDE(TERIPARATIDE) PEN,DISPOSABLE [Suspect]
     Indication: OSTEOPOROSIS
     Dosage: 20 UL, DAILY (1/D)
     Dates: start: 20040201
  2. RALOXIFENE HCL [Suspect]
     Dosage: 60 MG, DAILY (1/D)
     Dates: start: 20030901, end: 20040201
  3. FORTEO [Concomitant]
  4. TALVOSILEN (CODEINE PHOSPHATE, PARACETAMOL) [Concomitant]
  5. MAGNESIUM VERLA DRAGEES (MAGNESIUM CITRATE, MAGNESIUM GLUTAMATE, MAGNE [Concomitant]
  6. BLOPRESS /GFR/ (CANDESARTAN CILEXETIL) [Concomitant]
  7. NORVASC /GRC/ (AMLODIPINE) [Concomitant]
  8. VIGANTOLETTEN ^BAYER^ (COLECALCIFEROL) [Concomitant]
  9. LOPRESSOR [Concomitant]
  10. PANTOZOL /GFR/ (PANTOPRAZOLE SODIUM) [Concomitant]
  11. ALLOPURINOL [Concomitant]
  12. ZOCOR [Concomitant]
  13. DICLOFENAC [Concomitant]

REACTIONS (6)
  - BACK PAIN [None]
  - BUTTOCK PAIN [None]
  - FAECAL INCONTINENCE [None]
  - FALL [None]
  - PAIN IN EXTREMITY [None]
  - SPINAL CORD COMPRESSION [None]
